FAERS Safety Report 15456604 (Version 1)
Quarter: 2018Q4

REPORT INFORMATION
  Report Type: Report from Study
  Country: US (occurrence: US)
  Receive Date: 20181002
  Receipt Date: 20181002
  Transmission Date: 20190204
  Serious: Yes (Hospitalization, Other)
  Sender: FDA-Public Use
  Company Number: US-GILEAD-2018-0365911

PATIENT
  Age: 41 Year
  Sex: Female

DRUGS (2)
  1. AZTREONAM LYSINE [Suspect]
     Active Substance: AZTREONAM LYSINE
     Indication: CYSTIC FIBROSIS
     Dosage: 75 MG, TID
     Route: 055
     Dates: start: 201510
  2. AZTREONAM LYSINE [Suspect]
     Active Substance: AZTREONAM LYSINE
     Indication: PSEUDOMONAS INFECTION

REACTIONS (6)
  - Sinus operation [Recovered/Resolved]
  - Tachycardia [Recovered/Resolved]
  - Lung disorder [Recovered/Resolved]
  - Lung disorder [Recovered/Resolved]
  - Lung disorder [Recovered/Resolved]
  - Lung disorder [Recovered/Resolved]

NARRATIVE: CASE EVENT DATE: 201710
